FAERS Safety Report 25659344 (Version 1)
Quarter: 2025Q3

REPORT INFORMATION
  Report Type: Spontaneous
  Country: US (occurrence: US)
  Receive Date: 20250808
  Receipt Date: 20250808
  Transmission Date: 20251020
  Serious: Yes (Other)
  Sender: UNICHEM
  Company Number: US-UNICHEM LABORATORIES LIMITED-UNI-2025-US-002974

PATIENT

DRUGS (5)
  1. BUSPIRONE [Suspect]
     Active Substance: BUSPIRONE HYDROCHLORIDE
     Indication: Product used for unknown indication
     Route: 065
     Dates: start: 20250711
  2. NUZYRA [Suspect]
     Active Substance: OMADACYCLINE
     Indication: Product used for unknown indication
     Route: 048
     Dates: start: 20241211
  3. NUZYRA [Suspect]
     Active Substance: OMADACYCLINE
     Route: 048
  4. CLOFAZIMINE [Concomitant]
     Active Substance: CLOFAZIMINE
     Indication: Product used for unknown indication
     Route: 065
  5. CEFOXITIN [Concomitant]
     Active Substance: CEFOXITIN SODIUM
     Indication: Product used for unknown indication
     Route: 065

REACTIONS (5)
  - Pneumonia bacterial [Unknown]
  - Gastrointestinal disorder [Unknown]
  - Rash [Recovering/Resolving]
  - Nausea [Recovering/Resolving]
  - Hepatic enzyme increased [Unknown]
